FAERS Safety Report 4765503-9 (Version None)
Quarter: 2005Q3

REPORT INFORMATION
  Report Type: 
  Country: None (occurrence: None)
  Receive Date: 20050912
  Receipt Date: 20050901
  Transmission Date: 20060218
  Serious: Yes (Hospitalization)
  Sender: FDA-Public Use
  Company Number: US-JNJFOC-20050900452

PATIENT
  Sex: Female
  Weight: 101.61 kg

DRUGS (10)
  1. REMICADE [Suspect]
     Route: 042
  2. REMICADE [Suspect]
     Indication: RHEUMATOID ARTHRITIS
     Route: 042
  3. PREDNISONE TAB [Concomitant]
  4. NEURONTIN [Concomitant]
  5. LORACET [Concomitant]
  6. LOTREL [Concomitant]
  7. LOTREL [Concomitant]
  8. NEXIUM [Concomitant]
  9. TAMAZEPAM [Concomitant]
  10. RESTORIL [Concomitant]

REACTIONS (5)
  - BALANCE DISORDER [None]
  - LUNG DISORDER [None]
  - PARAESTHESIA [None]
  - RHEUMATOID ARTHRITIS [None]
  - WEIGHT DECREASED [None]
